FAERS Safety Report 9838582 (Version 3)
Quarter: 2015Q2

REPORT INFORMATION
  Report Type: Spontaneous
  Country: US (occurrence: US)
  Receive Date: 20140123
  Receipt Date: 20150515
  Transmission Date: 20150821
  Serious: Yes (Hospitalization, Other)
  Sender: FDA-Public Use
  Company Number: US-PFIZER INC-2014020083

PATIENT
  Age: 36 Year
  Sex: Male
  Weight: 125 kg

DRUGS (10)
  1. DILANTIN [Interacting]
     Active Substance: PHENYTOIN
     Dosage: 1200 MG, UNK (STARTED IV DILANTIN DRIP 1200 MG)
     Dates: start: 20120912
  2. DILANTIN [Interacting]
     Active Substance: PHENYTOIN
     Dosage: UNK (EXTRA 200 MG )
     Route: 048
     Dates: start: 20120914
  3. COUMADINE [Interacting]
     Active Substance: WARFARIN SODIUM
     Indication: ANTIPHOSPHOLIPID ANTIBODIES
     Dosage: 20 MG, DAILY
     Dates: start: 20110311
  4. DILANTIN [Suspect]
     Active Substance: PHENYTOIN
     Dosage: 300MG IN MORNING, 200MG IN NOON AND 200MG AT NIGHT, 3X/DAY
     Dates: start: 20040106
  5. DILANTIN [Interacting]
     Active Substance: PHENYTOIN
     Dosage: 700 MG, DAILY (INCREASED DILANTIN TO 700 DAILY)
     Dates: start: 20120917
  6. AMLODIPINE [Concomitant]
     Active Substance: AMLODIPINE BESYLATE
     Indication: HYPERTENSION
     Dosage: 5 MG, DAILY
     Dates: start: 2008
  7. PHENYTOIN SODIUM. [Interacting]
     Active Substance: PHENYTOIN SODIUM
     Dosage: 100 MG, UNK (100 MG 7X DAY)
     Dates: start: 20040106
  8. LOVENOX [Concomitant]
     Active Substance: ENOXAPARIN SODIUM
     Dosage: UNK, 2X/DAY
  9. COUMADINE [Interacting]
     Active Substance: WARFARIN SODIUM
     Dosage: UNK
     Dates: end: 20120914
  10. DILANTIN [Interacting]
     Active Substance: PHENYTOIN
     Dosage: UNK (ADD 1 MORE 100 MG DILANTIN)
     Dates: start: 20131011

REACTIONS (16)
  - Drug interaction [Recovered/Resolved]
  - Gait disturbance [Unknown]
  - Coma [Recovered/Resolved]
  - Confusional state [Unknown]
  - Pain in extremity [Unknown]
  - Peripheral swelling [Unknown]
  - Drug dose omission [Unknown]
  - Anticonvulsant drug level decreased [Unknown]
  - Anticonvulsant drug level increased [Unknown]
  - Thrombosis [Unknown]
  - Pyrexia [Unknown]
  - Oropharyngeal pain [Unknown]
  - Cold sweat [Unknown]
  - Limb discomfort [Unknown]
  - Blood pressure increased [Unknown]
  - Dyskinesia [Unknown]

NARRATIVE: CASE EVENT DATE: 20120830
